FAERS Safety Report 14861695 (Version 6)
Quarter: 2018Q2

REPORT INFORMATION
  Report Type: Report from Study
  Country: JP (occurrence: JP)
  Receive Date: 20180508
  Receipt Date: 20180612
  Transmission Date: 20180711
  Serious: Yes (Life-Threatening)
  Sender: FDA-Public Use
  Company Number: JP-PFIZER INC-2018187762

PATIENT
  Age: 63 Year
  Sex: Male

DRUGS (22)
  1. TEGRETOL [Suspect]
     Active Substance: CARBAMAZEPINE
     Indication: SCHIZOPHRENIA
     Dosage: 800 MG, UNK
     Route: 048
     Dates: end: 20180430
  2. IMIPENEM HYDRATE CILASTATIN SODIUM [Concomitant]
     Indication: PNEUMONIA
     Dosage: 0.5 G, UNK
     Route: 041
     Dates: start: 20180430, end: 20180507
  3. ZIPRASIDONE HCL [Suspect]
     Active Substance: ZIPRASIDONE HYDROCHLORIDE
     Indication: SCHIZOPHRENIA
     Dosage: UNK UNK, DAILY
     Route: 048
     Dates: start: 20171227, end: 20180110
  4. ZIPRASIDONE HCL [Suspect]
     Active Substance: ZIPRASIDONE HYDROCHLORIDE
     Dosage: 120 MG, DAILY
     Route: 048
     Dates: start: 20180511
  5. SERENACE [Suspect]
     Active Substance: HALOPERIDOL
     Indication: SCHIZOPHRENIA
     Dosage: 18 MG, UNK
     Route: 048
     Dates: end: 20180430
  6. LUBIPROSTONE [Concomitant]
     Active Substance: LUBIPROSTONE
     Indication: CONSTIPATION
     Dosage: 48 UG, UNK
     Route: 048
     Dates: end: 20180430
  7. DAIKENCHUTO [Concomitant]
     Active Substance: HERBALS
     Indication: CHRONIC GASTRITIS
     Dosage: 15 G, UNK
     Route: 048
  8. PANTETHINE [Concomitant]
     Active Substance: PANTETHINE
     Indication: ILEUS
     Dosage: 200 MG, UNK
     Route: 041
     Dates: start: 20180430, end: 20180507
  9. ZIPRASIDONE HCL [Suspect]
     Active Substance: ZIPRASIDONE HYDROCHLORIDE
     Dosage: 120 MG, DAILY
     Route: 048
     Dates: start: 20180129, end: 20180430
  10. MAGNESIUM OXIDE. [Concomitant]
     Active Substance: MAGNESIUM OXIDE
     Indication: CONSTIPATION
     Dosage: 2 G, UNK
     Route: 048
  11. ZIPRASIDONE HCL [Suspect]
     Active Substance: ZIPRASIDONE HYDROCHLORIDE
     Dosage: 40 MG, DAILY
     Route: 048
     Dates: start: 20180110, end: 20180116
  12. SODIUM FERROUS CITRATE [Concomitant]
     Active Substance: SODIUM FERROUS CITRATE
     Indication: IRON DEFICIENCY ANAEMIA
     Dosage: 100 MG, UNK
     Route: 048
     Dates: end: 20180430
  13. QUAZEPAM. [Concomitant]
     Active Substance: QUAZEPAM
     Indication: INSOMNIA
     Dosage: 30 MG, UNK
     Route: 048
     Dates: end: 20180430
  14. QUAZEPAM. [Concomitant]
     Active Substance: QUAZEPAM
     Dosage: 15 MG, UNK
     Route: 048
     Dates: start: 20180509
  15. SODIUM PICOSULFATE HYDRATE [Concomitant]
     Active Substance: SODIUM PICOSULFATE
     Indication: CONSTIPATION
     Dosage: UNKNOWN (PROPER DOSE)
     Route: 048
  16. GLYCERIN. [Concomitant]
     Active Substance: GLYCERIN
     Indication: CONSTIPATION
     Dosage: 120 ML, UNK
     Route: 048
  17. ZIPRASIDONE HCL [Suspect]
     Active Substance: ZIPRASIDONE HYDROCHLORIDE
     Dosage: 80 MG, DAILY
     Route: 048
     Dates: start: 20180117, end: 20180128
  18. DIAZEPAM. [Concomitant]
     Active Substance: DIAZEPAM
     Indication: SCHIZOPHRENIA
     Dosage: 10 MG, UNK
     Route: 048
     Dates: end: 20180430
  19. PROMETHAZINE METHYLENEDISALICYLATE [Concomitant]
     Active Substance: PROMETHAZINE METHYLENEDISALICYLATE
     Indication: INSOMNIA
     Dosage: 100 MG, UNK
     Route: 048
     Dates: end: 20180430
  20. BISACODYL. [Concomitant]
     Active Substance: BISACODYL
     Indication: CONSTIPATION
     Dosage: 10 MG, UNK
     Route: 048
  21. PHENOBAL [Suspect]
     Active Substance: PHENOBARBITAL
     Indication: INSOMNIA
     Dosage: 30 MG, UNK
     Route: 048
     Dates: end: 20180430
  22. ELECTROLYTE SOLUTION [Concomitant]
     Indication: FLUID REPLACEMENT
     Dosage: 2000 ML, UNK
     Route: 041
     Dates: start: 20180430, end: 20180507

REACTIONS (1)
  - Hepatic function abnormal [Recovered/Resolved]

NARRATIVE: CASE EVENT DATE: 20180501
